FAERS Safety Report 20505466 (Version 1)
Quarter: 2022Q1

REPORT INFORMATION
  Report Type: Other
  Country: CA (occurrence: CA)
  Receive Date: 20220223
  Receipt Date: 20220223
  Transmission Date: 20220423
  Serious: Yes (Hospitalization, Other)
  Sender: FDA-Public Use
  Company Number: CA-APOTEX-2022AP003573

PATIENT
  Age: 78 Year
  Sex: Female

DRUGS (2)
  1. OMEPRAZOLE [Suspect]
     Active Substance: OMEPRAZOLE
     Indication: Infection
     Dosage: UNK
     Route: 048
  2. HUMIRA [Suspect]
     Active Substance: ADALIMUMAB
     Indication: Ankylosing spondylitis
     Dosage: 40 MILLIGRAM, Q.O.WK.
     Route: 058

REACTIONS (4)
  - Renal disorder [Recovered/Resolved]
  - Hospitalisation [Recovered/Resolved]
  - Product use in unapproved indication [Recovered/Resolved]
  - Drug hypersensitivity [Recovered/Resolved]
